FAERS Safety Report 5491865-3 (Version None)
Quarter: 2007Q4

REPORT INFORMATION
  Report Type: 
  Country: None (occurrence: None)
  Receive Date: 20071022
  Receipt Date: 20071016
  Transmission Date: 20080405
  Serious: Yes (Other)
  Sender: FDA-Public Use
  Company Number: PHEH2006US01253

PATIENT
  Age: 53 Year
  Sex: Female
  Weight: 86.167 kg

DRUGS (4)
  1. ZOMETA [Suspect]
     Indication: BREAST CANCER METASTATIC
     Dosage: MONTHLY
     Dates: start: 20040201, end: 20050601
  2. ARIMIDEX [Concomitant]
     Indication: BREAST CANCER
  3. FEMARA [Concomitant]
     Indication: BREAST CANCER
  4. VITAMINS [Concomitant]

REACTIONS (15)
  - BONE DISORDER [None]
  - COMPUTERISED TOMOGRAM ABNORMAL [None]
  - DYSGEUSIA [None]
  - IMPAIRED HEALING [None]
  - LOOSE TOOTH [None]
  - MALIGNANT NEOPLASM PROGRESSION [None]
  - NASAL SINUS CANCER [None]
  - OSTEONECROSIS [None]
  - PAIN IN JAW [None]
  - PRIMARY SEQUESTRUM [None]
  - RESORPTION BONE INCREASED [None]
  - SINUS DISORDER [None]
  - TOOTH EXTRACTION [None]
  - TOOTH LOSS [None]
  - WOUND DRAINAGE [None]
